FAERS Safety Report 7455599-8 (Version None)
Quarter: 2011Q2

REPORT INFORMATION
  Report Type: 
  Country: None (occurrence: None)
  Receive Date: 20110503
  Receipt Date: 20110419
  Transmission Date: 20111010
  Serious: Yes (Death)
  Sender: FDA-Public Use
  Company Number: DE-ROCHE-773762

PATIENT
  Sex: Male
  Weight: 87 kg

DRUGS (4)
  1. BEVACIZUMAB [Suspect]
     Route: 065
     Dates: start: 20100715, end: 20101215
  2. FLUOROURACIL [Concomitant]
     Dates: start: 20100715, end: 20101219
  3. FOLINIC ACID [Concomitant]
     Dates: start: 20100715, end: 20101219
  4. OXALIPLATIN [Concomitant]
     Dates: start: 20100715, end: 20101219

REACTIONS (1)
  - NO THERAPEUTIC RESPONSE [None]
